FAERS Safety Report 7235442-2 (Version None)
Quarter: 2011Q1

REPORT INFORMATION
  Report Type: 
  Country: None (occurrence: None)
  Receive Date: 20110120
  Receipt Date: 20110117
  Transmission Date: 20110831
  Serious: Yes (Hospitalization)
  Sender: FDA-Public Use
  Company Number: US-JNJFOC-20110104712

PATIENT
  Sex: Male
  Weight: 67.13 kg

DRUGS (4)
  1. HYDROCODONE [Concomitant]
     Indication: PAIN
     Dosage: 5/325 TABLET 1 EVERY 4 HOURS
     Route: 048
  2. PROTONIX [Concomitant]
     Indication: GASTRIC DISORDER
     Route: 048
  3. TOPAMAX [Suspect]
     Indication: CONVULSION
     Route: 048
  4. TEGRETOL [Concomitant]
     Indication: CONVULSION
     Route: 048

REACTIONS (2)
  - DYSPHAGIA [None]
  - BRAIN NEOPLASM MALIGNANT [None]
